FAERS Safety Report 14365286 (Version 1)
Quarter: 2018Q1

REPORT INFORMATION
  Report Type: Spontaneous
  Country: US (occurrence: US)
  Receive Date: 20180108
  Receipt Date: 20180108
  Transmission Date: 20180509
  Serious: Yes (Hospitalization, Disabling, Other)
  Sender: FDA-Public Use
  Company Number: US-ASTRAZENECA-2018SE01944

PATIENT
  Age: 667 Month
  Sex: Male
  Weight: 86.2 kg

DRUGS (2)
  1. RANEXA [Concomitant]
     Active Substance: RANOLAZINE
     Route: 048
     Dates: start: 2014
  2. SYMBICORT [Suspect]
     Active Substance: BUDESONIDE\FORMOTEROL FUMARATE DIHYDRATE
     Dosage: 80/4.5MCG, ONE OR TWO PUFFS ONCE DAILY AT NIGHT
     Route: 055
     Dates: start: 2014

REACTIONS (4)
  - Myocardial infarction [Recovering/Resolving]
  - Appendicitis perforated [Recovering/Resolving]
  - Coronary artery occlusion [Unknown]
  - Dyspnoea [Not Recovered/Not Resolved]

NARRATIVE: CASE EVENT DATE: 201704
